FAERS Safety Report 4621677-1 (Version None)
Quarter: 2005Q1

REPORT INFORMATION
  Report Type: 
  Country: None (occurrence: None)
  Receive Date: 20050328
  Receipt Date: 20050315
  Transmission Date: 20050727
  Serious: Yes (Life-Threatening, Hospitalization, Other)
  Sender: FDA-Public Use
  Company Number: 2005045999

PATIENT
  Age: 68 Year
  Sex: Female
  Weight: 96.1626 kg

DRUGS (7)
  1. NEURONTIN [Suspect]
     Indication: PAIN IN EXTREMITY
     Dosage: 2400 MG (800 MG, 3 IN 1 D)
     Dates: end: 20040401
  2. CELEBREX [Suspect]
     Indication: ARTHRITIS
     Dosage: 400 MG (200 MG, 2 IN 1 D)
     Dates: start: 20011001
  3. FLUOXETINE HCL [Suspect]
     Indication: DEPRESSION
  4. ALPRAZOLAM [Concomitant]
  5. THYROID TAB [Concomitant]
  6. CONJUGATED ESTROGENS [Concomitant]
  7. ANTIHYPERTENSIVES (ANTIHYPERTENSIVES) [Concomitant]

REACTIONS (9)
  - CORONARY ARTERY OCCLUSION [None]
  - DEPRESSION [None]
  - DYSPNOEA [None]
  - FACIAL BONES FRACTURE [None]
  - FALL [None]
  - HOMELESS [None]
  - JOINT INJURY [None]
  - SUICIDAL IDEATION [None]
  - SUICIDE ATTEMPT [None]
